FAERS Safety Report 26022208 (Version 1)
Quarter: 2025Q4

REPORT INFORMATION
  Report Type: Report from Study
  Country: JP (occurrence: JP)
  Receive Date: 20251110
  Receipt Date: 20251110
  Transmission Date: 20260118
  Serious: Yes (Hospitalization)
  Sender: SCIECURE PHARMA
  Company Number: JP-Sciecure Pharma Inc.-2188218

PATIENT
  Age: 49 Year
  Sex: Male

DRUGS (1)
  1. PAROXETINE HYDROCHLORIDE [Suspect]
     Active Substance: PAROXETINE HYDROCHLORIDE
     Indication: Depression

REACTIONS (5)
  - Drug interaction [Recovered/Resolved with Sequelae]
  - Drug level increased [Recovered/Resolved]
  - Fall [Recovered/Resolved]
  - Toxicity to various agents [Recovered/Resolved with Sequelae]
  - Electrocardiogram QRS complex prolonged [Recovered/Resolved with Sequelae]
